FAERS Safety Report 7153317-4 (Version None)
Quarter: 2010Q4

REPORT INFORMATION
  Report Type: 
  Country: None (occurrence: None)
  Receive Date: 20101213
  Receipt Date: 20101202
  Transmission Date: 20110411
  Serious: Yes (Other)
  Sender: FDA-Public Use
  Company Number: RU-ROCHE-746729

PATIENT
  Age: 58 Year
  Sex: Female

DRUGS (5)
  1. AVASTIN [Suspect]
     Dosage: ON DAY 1
     Route: 042
     Dates: start: 20070901
  2. AVASTIN [Suspect]
     Route: 042
     Dates: start: 20080501, end: 20080801
  3. XELODA [Suspect]
     Dosage: ON DAY 1-14
     Route: 065
     Dates: start: 20070901
  4. XELODA [Suspect]
     Dosage: DOSE REDUCED BY 25%, MONO-REGIMEN ON DAY 1-14
     Route: 065
     Dates: start: 20080701, end: 20080801
  5. OXALIPLATIN [Suspect]
     Route: 065
     Dates: start: 20080101, end: 20080801

REACTIONS (4)
  - EPISTAXIS [None]
  - HYPERTENSION [None]
  - PALMAR-PLANTAR ERYTHRODYSAESTHESIA SYNDROME [None]
  - PERIPHERAL SENSORY NEUROPATHY [None]
